FAERS Safety Report 20502640 (Version 1)
Quarter: 2022Q1

REPORT INFORMATION
  Report Type: Spontaneous
  Country: US (occurrence: None)
  Receive Date: 20220221
  Receipt Date: 20220221
  Transmission Date: 20220423
  Serious: Yes (Hospitalization)
  Sender: FDA-Public Use
  Company Number: None

PATIENT
  Sex: Male

DRUGS (2)
  1. HUMIRA [Suspect]
     Active Substance: ADALIMUMAB
     Indication: Colitis
     Dosage: OTHER QUANTITY : 40MG/0.4ML? ?RX2: INJECT 40 MG UNDER THE SKIN (SUBCUTANEOUS INJECTION) EVERY OTHER
     Route: 058
     Dates: start: 20211204
  2. HUMIRA CF PEN-CD/UC/HS START [Concomitant]

REACTIONS (6)
  - Dyspnoea [None]
  - Fatigue [None]
  - Dizziness [None]
  - Nasopharyngitis [None]
  - Loss of employment [None]
  - Parosmia [None]
